FAERS Safety Report 6207825-0 (Version None)
Quarter: 2009Q2

REPORT INFORMATION
  Report Type: 
  Country: None (occurrence: None)
  Receive Date: 20090522
  Receipt Date: 20090514
  Transmission Date: 20091009
  Serious: Yes (Other)
  Sender: FDA-Public Use
  Company Number: 2009-01195

PATIENT
  Age: 71 Year
  Sex: Female
  Weight: 70 kg

DRUGS (4)
  1. VELCADE [Suspect]
     Indication: DRUG USE FOR UNKNOWN INDICATION
     Dosage: 1.3 MG, INTRAVENOUS ; 1 MG, INTRAVENOUS
     Route: 042
     Dates: start: 20090203, end: 20090213
  2. VALSARTAN [Concomitant]
  3. COUMADIN [Concomitant]
  4. PROPYLTHIOURACIL [Concomitant]

REACTIONS (6)
  - ABNORMAL BEHAVIOUR [None]
  - ASTHENIA [None]
  - HALLUCINATION [None]
  - NERVOUS SYSTEM DISORDER [None]
  - NEUROPATHY PERIPHERAL [None]
  - VERTIGO [None]
